FAERS Safety Report 15539605 (Version 1)
Quarter: 2018Q4

REPORT INFORMATION
  Report Type: Spontaneous
  Country: HR (occurrence: HR)
  Receive Date: 20181023
  Receipt Date: 20181023
  Transmission Date: 20190205
  Serious: Yes (Other)
  Sender: FDA-Public Use
  Company Number: HR-AMGEN-HRVSP2018145857

PATIENT
  Age: 72 Year
  Sex: Female

DRUGS (4)
  1. ATORIS [Concomitant]
     Active Substance: ATORVASTATIN CALCIUM
     Dosage: 20 MG, UNK
     Route: 048
  2. ANDOL PRO [Concomitant]
     Dosage: UNK
     Route: 048
  3. PROLIA [Suspect]
     Active Substance: DENOSUMAB
     Indication: SPINAL FRACTURE
     Dosage: 60 MG, Q6MO
     Route: 058
     Dates: start: 20170822
  4. CORDARONE [Concomitant]
     Active Substance: AMIODARONE HYDROCHLORIDE
     Dosage: 200 MG, UNK
     Route: 048

REACTIONS (5)
  - Blood pressure increased [Recovered/Resolved]
  - Lymphadenopathy [Unknown]
  - Face oedema [Recovered/Resolved]
  - Induration [Unknown]
  - Ulcer [Not Recovered/Not Resolved]

NARRATIVE: CASE EVENT DATE: 20170822
